FAERS Safety Report 20148322 (Version 1)
Quarter: 2021Q4

REPORT INFORMATION
  Report Type: Spontaneous
  Country: CA (occurrence: CA)
  Receive Date: 20211204
  Receipt Date: 20211204
  Transmission Date: 20220303
  Serious: Yes (Other)
  Sender: FDA-Public Use
  Company Number: CA-AUROBINDO-AUR-APL-2021-049725

PATIENT
  Age: 67 Year
  Sex: Female
  Weight: 104 kg

DRUGS (4)
  1. LISINOPRIL [Suspect]
     Active Substance: LISINOPRIL
     Indication: Product used for unknown indication
     Dosage: UNK
     Route: 048
  2. INFLIXIMAB [Suspect]
     Active Substance: INFLIXIMAB
     Indication: Crohn^s disease
     Dosage: 500.0  MILLIGRAM (1 EVERY 8 WEEKS)
     Route: 041
  3. INFLIXIMAB [Suspect]
     Active Substance: INFLIXIMAB
     Dosage: 500.0  MILLIGRAM (1 EVERY 8 WEEKS)
     Route: 041
  4. INFLIXIMAB [Suspect]
     Active Substance: INFLIXIMAB
     Dosage: 500.0  MILLIGRAM (1 EVERY 8 WEEKS)
     Route: 041

REACTIONS (6)
  - Cataract [Unknown]
  - Chest pain [Unknown]
  - Fatigue [Unknown]
  - Pain [Unknown]
  - Pneumonia [Unknown]
  - Off label use [Unknown]
